FAERS Safety Report 7101263-4 (Version None)
Quarter: 2010Q4

REPORT INFORMATION
  Report Type: 
  Country: None (occurrence: None)
  Receive Date: 20101115
  Receipt Date: 20100310
  Transmission Date: 20110411
  Serious: No
  Sender: FDA-Public Use
  Company Number: US-PFIZER INC-2010031890

PATIENT
  Sex: Female
  Weight: 83 kg

DRUGS (1)
  1. CLEOCIN [Suspect]
     Indication: LOCALISED INFECTION
     Dosage: 150 MG, 4X/DAY
     Dates: start: 20100308

REACTIONS (2)
  - ABDOMINAL PAIN UPPER [None]
  - DIARRHOEA [None]
